FAERS Safety Report 7243693-6 (Version None)
Quarter: 2011Q1

REPORT INFORMATION
  Report Type: 
  Country: None (occurrence: None)
  Receive Date: 20110118
  Receipt Date: 20110106
  Transmission Date: 20110831
  Serious: Yes (Death, Life-Threatening, Hospitalization)
  Sender: FDA-Public Use
  Company Number: LEO-2011-00021

PATIENT
  Age: 85 Year
  Sex: Male

DRUGS (10)
  1. INNOHEP [Suspect]
     Indication: PRODUCT USED FOR UNKNOWN INDICATION
     Dosage: 14000 IU (14000 IU,1 IN 1 D),SUBCUTANEOUS
     Route: 058
     Dates: start: 20101215, end: 20101228
  2. PREVISCAN (PENTOXIFYLLINE) (20 MILLIGRAM, TABLETS) [Suspect]
     Indication: PRODUCT USED FOR UNKNOWN INDICATION
     Dosage: 20 MG (1 IN 1 D),ORAL
     Route: 048
     Dates: start: 20101215, end: 20101228
  3. VASTEN (PRAVASTATIN SODIUM) (40 MILLIGRAM) [Concomitant]
  4. VITAMINE K( MENADIONE) [Concomitant]
  5. COLCHIMAX (COLCHICINE, DICYCLOVERINE HYDROCHLORIDE) (TABLETS) [Concomitant]
  6. SOLUPRED (PREDNISOLONE) (TABLETS) [Concomitant]
  7. TAREG (VALSARTAN) (160 MILLIGRAM) [Concomitant]
  8. XATRAL (ALFUZOSIN HYDROCHLORIDE) (10 MILLIGRAM, TABLETS) [Concomitant]
  9. KANOKAD (ALL OTHER THERAPEUTICS PRODUCTS) [Concomitant]
  10. KARDEGIC (ACETYLICYLATE LYSINE) (75 MILLIGRAM) [Suspect]
     Indication: PRODUCT USED FOR UNKNOWN INDICATION
     Dosage: (1 IN 1 D),ORAL
     Route: 048

REACTIONS (9)
  - BLOOD PRESSURE DECREASED [None]
  - PULMONARY EMBOLISM [None]
  - C-REACTIVE PROTEIN INCREASED [None]
  - LUNG NEOPLASM [None]
  - PLEURAL EFFUSION [None]
  - HAEMORRHAGE [None]
  - CREATININE RENAL CLEARANCE DECREASED [None]
  - INTERNATIONAL NORMALISED RATIO INCREASED [None]
  - COAGULATION TIME PROLONGED [None]
